FAERS Safety Report 7629139-4 (Version None)
Quarter: 2011Q3

REPORT INFORMATION
  Report Type: 
  Country: None (occurrence: None)
  Receive Date: 20110722
  Receipt Date: 20110606
  Transmission Date: 20111222
  Serious: No
  Sender: FDA-Public Use
  Company Number: US-MUTUAL PHARMACEUTICAL COMPANY, INC.-DXCY20110008

PATIENT
  Sex: Female

DRUGS (1)
  1. DOXYCYCLINE [Suspect]
     Indication: ROSACEA
     Route: 065
     Dates: start: 20110501

REACTIONS (2)
  - HEADACHE [None]
  - BLOOD PRESSURE INCREASED [None]
